FAERS Safety Report 7659636-7 (Version None)
Quarter: 2011Q3

REPORT INFORMATION
  Report Type: 
  Country: None (occurrence: None)
  Receive Date: 20110802
  Receipt Date: 20110721
  Transmission Date: 20111222
  Serious: Yes (Hospitalization, Disabling, Other)
  Sender: FDA-Public Use
  Company Number: 2009SP040884

PATIENT
  Age: 36 Year
  Sex: Female
  Weight: 63.5036 kg

DRUGS (3)
  1. NUVARING [Suspect]
     Indication: CONTRACEPTION
     Dates: start: 20080101, end: 20090330
  2. OMEPRAZOLE [Concomitant]
  3. MARIJUANA [Concomitant]

REACTIONS (37)
  - ANAEMIA [None]
  - NASOPHARYNGITIS [None]
  - IMPAIRED WORK ABILITY [None]
  - GENERAL PHYSICAL CONDITION ABNORMAL [None]
  - SINUSITIS [None]
  - CARPAL TUNNEL SYNDROME [None]
  - SEASONAL ALLERGY [None]
  - OVERWEIGHT [None]
  - HYPOAESTHESIA [None]
  - DRUG ABUSE [None]
  - BRONCHITIS [None]
  - FATIGUE [None]
  - HEMIPARESIS [None]
  - PARAESTHESIA [None]
  - JOINT INJURY [None]
  - FIBROMYALGIA [None]
  - BRAIN INJURY [None]
  - DIZZINESS [None]
  - ABDOMINAL PAIN UPPER [None]
  - CEREBROVASCULAR ACCIDENT [None]
  - INSOMNIA [None]
  - PERIPHERAL VASCULAR DISORDER [None]
  - SYNCOPE [None]
  - TEMPERATURE INTOLERANCE [None]
  - FALL [None]
  - ASTHMA [None]
  - DIARRHOEA [None]
  - BLOOD IRON DECREASED [None]
  - THROMBOSIS [None]
  - DYSPNOEA [None]
  - RASH [None]
  - HYPERLIPIDAEMIA [None]
  - RECTAL HAEMORRHAGE [None]
  - MIGRAINE [None]
  - NEPHROLITHIASIS [None]
  - DEAFNESS [None]
  - DYSPEPSIA [None]
